FAERS Safety Report 9713731 (Version 1)
Quarter: 2013Q4

REPORT INFORMATION
  Report Type: Spontaneous
  Country: FR (occurrence: FR)
  Receive Date: 20131126
  Receipt Date: 20131126
  Transmission Date: 20140711
  Serious: Yes (Life-Threatening, Hospitalization)
  Sender: FDA-Public Use
  Company Number: FR-BRISTOL-MYERS SQUIBB COMPANY-19820174

PATIENT
  Age: 74 Year
  Sex: Female

DRUGS (3)
  1. ABILIFY [Suspect]
     Route: 048
     Dates: end: 201307
  2. SEROQUEL [Suspect]
     Dates: start: 201307, end: 20130909
  3. SEROPLEX [Concomitant]
     Dates: end: 201310

REACTIONS (4)
  - Dyskinesia [Recovering/Resolving]
  - Eyelid ptosis [Unknown]
  - Lung disorder [Recovered/Resolved]
  - Dysphagia [Not Recovered/Not Resolved]
